FAERS Safety Report 8542252-2 (Version None)
Quarter: 2012Q3

REPORT INFORMATION
  Report Type: 
  Country: None (occurrence: None)
  Receive Date: 20120726
  Receipt Date: 20120213
  Transmission Date: 20120928
  Serious: No
  Sender: FDA-Public Use
  Company Number: US-ASTRAZENECA-2011SE60075

PATIENT
  Age: 60 Year
  Sex: Male

DRUGS (2)
  1. SEROQUEL [Suspect]
     Route: 048
  2. SEROQUEL [Suspect]
     Route: 048

REACTIONS (4)
  - DEPRESSION [None]
  - MALAISE [None]
  - BIPOLAR DISORDER [None]
  - INCORRECT DOSE ADMINISTERED [None]
